FAERS Safety Report 7358929-0 (Version None)
Quarter: 2011Q1

REPORT INFORMATION
  Report Type: 
  Country: None (occurrence: None)
  Receive Date: 20110317
  Receipt Date: 20110315
  Transmission Date: 20110831
  Serious: Yes (Hospitalization)
  Sender: FDA-Public Use
  Company Number: US-BRISTOL-MYERS SQUIBB COMPANY-15609035

PATIENT
  Age: 39 Year
  Sex: Female

DRUGS (3)
  1. AMBIEN [Suspect]
     Dosage: 1DF=1TABLET; EVERY OTHER NIGHT
  2. CLONAZEPAM [Suspect]
  3. ABILIFY [Suspect]

REACTIONS (2)
  - ARTERIOSPASM CORONARY [None]
  - MYOCARDIAL INFARCTION [None]
